FAERS Safety Report 25634119 (Version 1)
Quarter: 2025Q3

REPORT INFORMATION
  Report Type: Spontaneous
  Country: CN (occurrence: CN)
  Receive Date: 20250801
  Receipt Date: 20250801
  Transmission Date: 20251021
  Serious: Yes (Hospitalization)
  Sender: HISUN PHARMACEUTICALS USA INC
  Company Number: CN-Hisun Pharmaceuticals USA Inc.-000559

PATIENT
  Age: 67 Year
  Sex: Female
  Weight: 69 kg

DRUGS (3)
  1. TICAGRELOR [Suspect]
     Active Substance: TICAGRELOR
     Indication: Peripheral arterial occlusive disease
     Route: 048
     Dates: start: 20250610, end: 20250614
  2. HERBALS [Suspect]
     Active Substance: HERBALS
     Indication: Peripheral arterial occlusive disease
     Route: 042
     Dates: start: 20250610, end: 20250614
  3. ASPIRIN [Suspect]
     Active Substance: ASPIRIN
     Indication: Peripheral arterial occlusive disease
     Route: 048
     Dates: start: 20250610, end: 20250614

REACTIONS (2)
  - Ocular hyperaemia [Recovered/Resolved with Sequelae]
  - Vision blurred [Recovered/Resolved with Sequelae]

NARRATIVE: CASE EVENT DATE: 20250614
